FAERS Safety Report 17753143 (Version 1)
Quarter: 2020Q2

REPORT INFORMATION
  Report Type: Spontaneous
  Country: US (occurrence: US)
  Receive Date: 20200506
  Receipt Date: 20200506
  Transmission Date: 20200714
  Serious: No
  Sender: FDA-Public Use
  Company Number: US-ROCHE-2500204

PATIENT
  Age: 79 Year
  Sex: Female

DRUGS (1)
  1. ESBRIET [Suspect]
     Active Substance: PIRFENIDONE
     Indication: IDIOPATHIC PULMONARY FIBROSIS
     Dosage: ONGOING: YES?PATIENT IS TAKING ESBRIET OFF LABEL AT 2 TABLETS THREE TIMES DAILY
     Route: 048
     Dates: start: 20181005

REACTIONS (3)
  - Off label use [Unknown]
  - No adverse event [Unknown]
  - Intentional product use issue [Unknown]

NARRATIVE: CASE EVENT DATE: 20181005
